FAERS Safety Report 6243125-0 (Version None)
Quarter: 2009Q2

REPORT INFORMATION
  Report Type: 
  Country: None (occurrence: None)
  Receive Date: 20090622
  Receipt Date: 20090622
  Transmission Date: 20091009
  Serious: No
  Sender: FDA-Public Use
  Company Number: None

PATIENT
  Sex: Female
  Weight: 65.7716 kg

DRUGS (1)
  1. ZYCAM NASAL GEL [Suspect]
     Indication: NASOPHARYNGITIS
     Dosage: 1 SQUIRT PER NOSTRAL 2 TIMES/DAY NASAL
     Route: 045
     Dates: start: 20090528, end: 20090606

REACTIONS (4)
  - AGEUSIA [None]
  - ANOSMIA [None]
  - HYPOGEUSIA [None]
  - HYPOSMIA [None]
